FAERS Safety Report 10162273 (Version 1)
Quarter: 2014Q2

REPORT INFORMATION
  Report Type: Spontaneous
  Country: US (occurrence: None)
  Receive Date: 20140507
  Receipt Date: 20140507
  Transmission Date: 20141212
  Serious: Yes (Hospitalization)
  Sender: FDA-Public Use
  Company Number: 001721158A

PATIENT
  Age: 44 Year
  Sex: Female

DRUGS (13)
  1. SHEER COVER NOURISHING MOISTURIZER SPF 15 [Suspect]
     Dosage: ONCE DERMAL
     Dates: start: 20140228
  2. SYNTHROID [Concomitant]
  3. HYDROCODONE [Concomitant]
  4. ACYCLOVIR [Concomitant]
  5. BABY ASPIRIN [Concomitant]
  6. NEURONTIN [Concomitant]
  7. LYRICA [Concomitant]
  8. DEPAKOTE [Concomitant]
  9. SEROQUEL [Concomitant]
  10. IVG TREATMENTS [Concomitant]
  11. VINCRISTINE [Concomitant]
  12. RITUXIN [Concomitant]
  13. EPIPEN PRN [Concomitant]

REACTIONS (6)
  - Urticaria [None]
  - Blister [None]
  - Skin exfoliation [None]
  - Hypogammaglobulinaemia [None]
  - Burns second degree [None]
  - Burns third degree [None]
